FAERS Safety Report 4884785-6 (Version None)
Quarter: 2006Q1

REPORT INFORMATION
  Report Type: 
  Country: None (occurrence: None)
  Receive Date: 20060117
  Receipt Date: 20060105
  Transmission Date: 20060701
  Serious: Yes (Life-Threatening, Hospitalization)
  Sender: FDA-Public Use
  Company Number: MK200601-0070-1

PATIENT
  Age: 58 Year
  Sex: Female

DRUGS (23)
  1. METHYLPHENIDATE HCL [Suspect]
     Indication: PSYCHOMOTOR RETARDATION
     Dosage: 5 MG, QD
  2. VERAPAMIL [Suspect]
     Indication: TACHYCARDIA
     Dosage: 40 MG, SINGLE DOSE, PO
     Route: 048
  3. TACROLIMUS [Concomitant]
  4. CYCLOPHOSPHAMIDE [Concomitant]
  5. PREDNISONE [Concomitant]
  6. DOPAMINE [Concomitant]
  7. VALGANCICLOVIR [Concomitant]
  8. ERYTHOPOIETIN [Concomitant]
  9. PRAVASTATIN [Concomitant]
  10. ASPIRIN [Concomitant]
  11. CALCIUM CITRATE [Concomitant]
  12. PANTOPRAZOLE [Concomitant]
  13. DOCUSATE SODIUM [Concomitant]
  14. AMPHOTERICIN B NEBULIZER [Concomitant]
  15. SULFAMETHOXAZOLE + TRIMETHOPRIM [Concomitant]
  16. FUROSEMIDE [Concomitant]
  17. LEVOFLOXACIN [Concomitant]
  18. ISOPHANE INSULIN [Concomitant]
  19. VANCOMYCIN [Concomitant]
  20. NYSTATIN [Concomitant]
  21. SUBCUTANEOUS HEPARIN [Concomitant]
  22. FERROS GLUCONATE [Concomitant]
  23. MULTI-VITAMIN [Concomitant]

REACTIONS (4)
  - ATRIOVENTRICULAR BLOCK SECOND DEGREE [None]
  - CARDIAC ARREST [None]
  - HYPOTENSION [None]
  - SUPRAVENTRICULAR TACHYCARDIA [None]
